FAERS Safety Report 9367690 (Version 3)
Quarter: 2013Q3

REPORT INFORMATION
  Report Type: Report from Study
  Country: AT (occurrence: AT)
  Receive Date: 20130625
  Receipt Date: 20130820
  Transmission Date: 20140515
  Serious: Yes (Death, Hospitalization)
  Sender: FDA-Public Use
  Company Number: AT-CELGENEUS-009-21660-13062253

PATIENT
  Age: 64 Year
  Sex: Female
  Weight: 57 kg

DRUGS (13)
  1. ABRAXANE [Suspect]
     Indication: BREAST CANCER
     Route: 065
     Dates: start: 20130515
  2. ABRAXANE [Suspect]
     Route: 065
     Dates: start: 20130605
  3. ABRAXANE [Suspect]
     Route: 065
     Dates: start: 20130627
  4. ACECOMP [Concomitant]
     Indication: HYPERTENSION
     Dosage: 20/123
     Route: 065
  5. ACECOMP [Concomitant]
     Dosage: 20/125
     Route: 065
  6. MIRTAZAPIN [Concomitant]
     Indication: PRODUCT USED FOR UNKNOWN INDICATION
     Route: 065
  7. OCULOTECT [Concomitant]
     Indication: PRODUCT USED FOR UNKNOWN INDICATION
     Dosage: 3 DOSAGE FORMS
     Route: 065
  8. VIDISEC [Concomitant]
     Indication: PRODUCT USED FOR UNKNOWN INDICATION
     Route: 065
  9. PANTOPRAZOLE [Concomitant]
     Indication: PRODUCT USED FOR UNKNOWN INDICATION
     Dosage: 40 MILLIGRAM
     Route: 065
  10. FRAGMIN [Concomitant]
     Indication: PRODUCT USED FOR UNKNOWN INDICATION
     Dosage: 750 IU (INTERNATIONAL UNIT)
     Route: 058
  11. FORTECORTIN [Concomitant]
     Indication: PRODUCT USED FOR UNKNOWN INDICATION
     Dosage: 8 MILLIGRAM
     Route: 065
  12. DEPAKOTE [Concomitant]
     Indication: METASTASES TO MENINGES
     Route: 065
     Dates: start: 20130514
  13. METOCLOPRAMIDE [Concomitant]
     Indication: PRODUCT USED FOR UNKNOWN INDICATION
     Route: 065
     Dates: start: 20130515

REACTIONS (15)
  - Cardiac failure [Fatal]
  - Haematoma [Unknown]
  - Vertigo [Recovered/Resolved]
  - Pupils unequal [Unknown]
  - General physical health deterioration [Recovered/Resolved]
  - General physical health deterioration [Fatal]
  - Muscular weakness [Not Recovered/Not Resolved]
  - Diarrhoea [Recovered/Resolved]
  - Decreased appetite [Unknown]
  - Weight decreased [Unknown]
  - Ataxia [Unknown]
  - Transaminases increased [Unknown]
  - Visual impairment [Recovered/Resolved]
  - Dysgeusia [Unknown]
  - Polyneuropathy [Unknown]
